FAERS Safety Report 7352574-9 (Version None)
Quarter: 2011Q1

REPORT INFORMATION
  Report Type: 
  Country: None (occurrence: None)
  Receive Date: 20110302
  Receipt Date: 20110103
  Transmission Date: 20110831
  Serious: Yes (Other)
  Sender: FDA-Public Use
  Company Number: 261908USA

PATIENT
  Sex: Female

DRUGS (8)
  1. OSTEOBIOFLEX [Concomitant]
  2. CLONIDINE [Concomitant]
  3. CLONIDINE [Suspect]
     Indication: HYPERTENSION
     Dosage: (0.3 MG)
  4. VALSARTAN [Concomitant]
  5. INDAPAMIDE [Concomitant]
  6. PYRIDOXINE HYDROCHLORIDE [Concomitant]
  7. POTASSIUM CHLORIDE [Concomitant]
  8. LUTON [Concomitant]

REACTIONS (5)
  - APPLICATION SITE PRURITUS [None]
  - HYPERTENSION [None]
  - APPLICATION SITE RASH [None]
  - APPLICATION SITE PAIN [None]
  - FEELING HOT [None]
